FAERS Safety Report 21502872 (Version 1)
Quarter: 2022Q4

REPORT INFORMATION
  Report Type: Spontaneous
  Country: US (occurrence: US)
  Receive Date: 20221025
  Receipt Date: 20221025
  Transmission Date: 20230113
  Serious: Yes (Other)
  Sender: FDA-Public Use
  Company Number: US-SA-SAC20221021000780

PATIENT
  Age: 69 Year
  Sex: Male

DRUGS (1)
  1. ZANTAC [Suspect]
     Active Substance: RANITIDINE HYDROCHLORIDE
     Indication: Dyspepsia
     Dosage: 150 MG;QD
     Dates: start: 199901, end: 202004

REACTIONS (3)
  - Gastrointestinal carcinoma [Recovering/Resolving]
  - Gastric cancer stage IV [Recovering/Resolving]
  - Small intestine carcinoma stage IV [Recovering/Resolving]

NARRATIVE: CASE EVENT DATE: 20200701
